FAERS Safety Report 13770074 (Version 1)
Quarter: 2017Q3

REPORT INFORMATION
  Report Type: Spontaneous
  Country: US (occurrence: US)
  Receive Date: 20170719
  Receipt Date: 20170719
  Transmission Date: 20171127
  Serious: Yes (Hospitalization)
  Sender: FDA-Public Use
  Company Number: None

PATIENT
  Age: 49 Year
  Sex: Female

DRUGS (3)
  1. TOBI PODHALER [Suspect]
     Active Substance: TOBRAMYCIN
     Indication: CYSTIC FIBROSIS
     Dosage: DOSE - 4 CAPS?FREQUENCY - BIG QOMOTH
     Route: 055
     Dates: start: 201407
  2. CAYSTON [Concomitant]
     Active Substance: AZTREONAM
  3. HYPER-SAL 7% 4ML [Suspect]
     Active Substance: SODIUM CHLORIDE
     Indication: CYSTIC FIBROSIS
     Dosage: DOSE - 1 VIAL
     Route: 055
     Dates: start: 201407

REACTIONS (2)
  - Lung transplant [None]
  - Hospitalisation [None]
